FAERS Safety Report 15343711 (Version 1)
Quarter: 2018Q3

REPORT INFORMATION
  Report Type: Other
  Country: HK (occurrence: HK)
  Receive Date: 20180903
  Receipt Date: 20180903
  Transmission Date: 20181010
  Serious: Yes (Hospitalization)
  Sender: FDA-Public Use
  Company Number: HK-VISTAPHARM, INC.-VER201808-000808

PATIENT
  Age: 17 Year
  Sex: Male

DRUGS (2)
  1. OMEPRAZOLE. [Concomitant]
     Active Substance: OMEPRAZOLE
     Indication: PEPTIC ULCER
     Dosage: UNKNOWN
  2. METOCLOPRAMIDE. [Suspect]
     Active Substance: METOCLOPRAMIDE
     Indication: DIARRHOEA INFECTIOUS
     Dosage: UNKNOWN
     Route: 042

REACTIONS (5)
  - Disseminated intravascular coagulation [Unknown]
  - Rhabdomyolysis [Unknown]
  - Circulatory collapse [Unknown]
  - Pneumonia [Unknown]
  - Renal tubular necrosis [Unknown]
